FAERS Safety Report 12168758 (Version 4)
Quarter: 2016Q2

REPORT INFORMATION
  Report Type: Spontaneous
  Country: IT (occurrence: IT)
  Receive Date: 20160310
  Receipt Date: 20160411
  Transmission Date: 20160815
  Serious: Yes (Hospitalization)
  Sender: FDA-Public Use
  Company Number: IT-PFIZER INC-2016140965

PATIENT
  Age: 72 Year
  Sex: Female

DRUGS (9)
  1. TIOTROPIUM BROMIDE [Suspect]
     Active Substance: TIOTROPIUM BROMIDE
     Route: 065
  2. SALMETEROL XINAFOATE/FLUTICASONE PROPIONATE [Suspect]
     Active Substance: FLUTICASONE PROPIONATE\SALMETEROL XINAFOATE
     Route: 065
  3. COLECALCIFEROL [Suspect]
     Active Substance: CHOLECALCIFEROL
     Route: 065
  4. DUROGESIC [Suspect]
     Active Substance: FENTANYL
     Dosage: 75 MCG/H
     Route: 065
  5. ASCRIPTIN [Suspect]
     Active Substance: ASPIRIN
     Dosage: UNK
     Route: 065
  6. VALIUM [Suspect]
     Active Substance: DIAZEPAM
     Dosage: 5 MG/ML
     Route: 065
  7. LAROXYL [Suspect]
     Active Substance: AMITRIPTYLINE
     Dosage: 40 MG/ML
     Route: 065
  8. PANTOPRAZOLE [Suspect]
     Active Substance: PANTOPRAZOLE SODIUM
     Route: 065
  9. AMLODIPINE BESILATE [Suspect]
     Active Substance: AMLODIPINE BESYLATE
     Route: 065

REACTIONS (3)
  - Confusional state [Recovering/Resolving]
  - Disorientation [Recovering/Resolving]
  - Vertigo [Unknown]

NARRATIVE: CASE EVENT DATE: 20160109
